FAERS Safety Report 13413252 (Version 2)
Quarter: 2017Q2

REPORT INFORMATION
  Report Type: Spontaneous
  Country: GB (occurrence: GB)
  Receive Date: 20170407
  Receipt Date: 20170407
  Transmission Date: 20170830
  Serious: Yes (Other)
  Sender: FDA-Public Use
  Company Number: GB-CIPLA LTD.-2017GB04844

PATIENT

DRUGS (10)
  1. LANSOPRAZOLE. [Suspect]
     Active Substance: LANSOPRAZOLE
     Indication: PRODUCT USED FOR UNKNOWN INDICATION
     Dosage: 30 MG, ONLY TAKE ON ODD OCCASIONS
     Route: 065
  2. DOXAZOSIN [Suspect]
     Active Substance: DOXAZOSIN\DOXAZOSIN MESYLATE
     Indication: HYPERTENSION
     Dosage: 4 MG, UNK, TAKING SINCE 1990^S
     Route: 065
     Dates: start: 1990
  3. ALENDRONATE [Suspect]
     Active Substance: ALENDRONATE SODIUM
     Indication: OSTEOPOROSIS
     Dosage: 70 MG, UNK
     Route: 065
     Dates: start: 201402, end: 201608
  4. PROLIA [Suspect]
     Active Substance: DENOSUMAB
     Indication: OSTEOPOROSIS
     Dosage: UNK, SECOND INJECTION WAS SUPPOSED TO BE ON 14-FEB-2017 BUT THIS WAS CANCELLED
     Route: 065
     Dates: start: 201608
  5. AMLODIPINE [Suspect]
     Active Substance: AMLODIPINE BESYLATE
     Indication: HYPERTENSION
     Dosage: 5 MG, UNK
     Route: 065
     Dates: start: 201307
  6. ARIPIPRAZOLE. [Suspect]
     Active Substance: ARIPIPRAZOLE
     Indication: PRODUCT USED FOR UNKNOWN INDICATION
     Dosage: 2.5 MG, INCREASED TO 5 MG IN JAN 2017
     Route: 065
     Dates: start: 201612
  7. BISOPROLOL [Suspect]
     Active Substance: BISOPROLOL
     Indication: HYPERTENSION
     Dosage: 5 MG, ALSO RECEIVED 1.25 MG SINCE NOV 2016
     Route: 065
     Dates: start: 201502
  8. OXPRENOLOL [Suspect]
     Active Substance: OXPRENOLOL
     Indication: HYPERTENSION
     Dosage: 160 MG, UNK
     Route: 065
  9. AMITRIPTYLINE [Suspect]
     Active Substance: AMITRIPTYLINE
     Indication: PRODUCT USED FOR UNKNOWN INDICATION
     Dosage: TAKEN 2 X 50 MG?ONLY TAKE ON ODD OCCASIONS
  10. ADCAL-D3 [Suspect]
     Active Substance: CALCIUM CARBONATE\CHOLECALCIFEROL
     Indication: OSTEOPOROSIS
     Dosage: UNK
     Route: 065
     Dates: start: 201402

REACTIONS (14)
  - Abdominal discomfort [Unknown]
  - Myalgia [Unknown]
  - Pain [Unknown]
  - Erythema [Unknown]
  - Influenza like illness [Unknown]
  - Muscle spasms [Unknown]
  - Chest discomfort [Unknown]
  - Constipation [Unknown]
  - Headache [Unknown]
  - Rhinorrhoea [Unknown]
  - Arthralgia [Unknown]
  - Urinary tract infection [Unknown]
  - Burning sensation [Unknown]
  - Bone pain [Unknown]
